FAERS Safety Report 21773936 (Version 2)
Quarter: 2023Q1

REPORT INFORMATION
  Report Type: Report from Study
  Country: US (occurrence: US)
  Receive Date: 20221223
  Receipt Date: 20230209
  Transmission Date: 20230417
  Serious: Yes (Other)
  Sender: FDA-Public Use
  Company Number: US-ABBVIE-4208460

PATIENT
  Age: 57 Year
  Sex: Male
  Weight: 99 kg

DRUGS (5)
  1. HUMIRA [Suspect]
     Active Substance: ADALIMUMAB
     Indication: Ankylosing spondylitis
     Dosage: CITRATE FREE
     Route: 058
     Dates: start: 20220501
  2. CELECOXIB [Concomitant]
     Active Substance: CELECOXIB
     Indication: Knee arthroplasty
     Route: 048
     Dates: start: 20221101, end: 20230106
  3. ASPIRIN [Concomitant]
     Active Substance: ASPIRIN
     Indication: Knee arthroplasty
     Dosage: STRENGTH : 81 MILLIGRAM
     Route: 048
     Dates: start: 20221122, end: 20230106
  4. GABAPENTIN [Concomitant]
     Active Substance: GABAPENTIN
     Indication: Knee arthroplasty
     Dosage: STRENGTH : 300 MILLIGRAM
     Route: 048
     Dates: start: 20221101, end: 20230106
  5. SIMVASTATIN [Concomitant]
     Active Substance: SIMVASTATIN
     Indication: Product used for unknown indication
     Dosage: STRENGTH : 40 MILLIGRAM

REACTIONS (3)
  - Knee arthroplasty [Unknown]
  - Injection site bruising [Recovered/Resolved]
  - Injection site erythema [Recovered/Resolved]

NARRATIVE: CASE EVENT DATE: 20221001
